FAERS Safety Report 6260312-6 (Version None)
Quarter: 2009Q3

REPORT INFORMATION
  Report Type: 
  Country: None (occurrence: None)
  Receive Date: 20090708
  Receipt Date: 20090701
  Transmission Date: 20100115
  Serious: Yes (Hospitalization)
  Sender: FDA-Public Use
  Company Number: US-GENENTECH-285231

PATIENT
  Sex: Female
  Weight: 155 kg

DRUGS (3)
  1. BEVACIZUMAB [Suspect]
     Indication: MALIGNANT MELANOMA
     Dosage: 10 MG/KG, DAYS 1+15
     Route: 042
     Dates: start: 20090604
  2. ABRAXANE [Suspect]
     Indication: MALIGNANT MELANOMA
     Dosage: 100 MG/M2, DAYS1,8,15
     Route: 042
     Dates: start: 20090604
  3. CARBOPLATIN [Suspect]
     Indication: MALIGNANT MELANOMA
     Dosage: 6 AUC, DAY 1
     Dates: start: 20090604

REACTIONS (5)
  - DYSPNOEA [None]
  - HYPOTENSION [None]
  - PAIN [None]
  - PLATELET DISORDER [None]
  - RENAL FAILURE [None]
